FAERS Safety Report 6867401-3 (Version None)
Quarter: 2010Q3

REPORT INFORMATION
  Report Type: 
  Country: None (occurrence: None)
  Receive Date: 20100722
  Receipt Date: 20100719
  Transmission Date: 20110219
  Serious: Yes (Other)
  Sender: FDA-Public Use
  Company Number: FR-BRISTOL-MYERS SQUIBB COMPANY-15200140

PATIENT
  Age: 47 Year
  Sex: Female

DRUGS (5)
  1. PRAVIGARD PAC (COPACKAGED) [Suspect]
     Dates: start: 20070806, end: 20070809
  2. AVONEX [Suspect]
     Indication: MULTIPLE SCLEROSIS
     Route: 042
     Dates: start: 20050101, end: 20070809
  3. SECTRAL [Concomitant]
     Dates: start: 20060801
  4. TRIATEC [Concomitant]
     Dates: start: 20060801
  5. KARDEGIC [Concomitant]
     Dates: start: 20060801

REACTIONS (1)
  - AUTOIMMUNE HEPATITIS [None]
